FAERS Safety Report 23888509 (Version 1)
Quarter: 2024Q2

REPORT INFORMATION
  Report Type: Spontaneous
  Country: US (occurrence: None)
  Receive Date: 20240522
  Receipt Date: 20240522
  Transmission Date: 20240716
  Serious: Yes (Other)
  Sender: FDA-Public Use
  Company Number: None

PATIENT
  Age: 62 Year
  Sex: Female
  Weight: 45.9 kg

DRUGS (8)
  1. ACIPHEX [Suspect]
     Active Substance: RABEPRAZOLE SODIUM
     Indication: Impaired gastric emptying
     Dosage: FREQUENCY : TWICE A DAY;?
     Route: 048
     Dates: start: 20140201, end: 20150501
  2. DICYCLOMINE [Suspect]
     Active Substance: DICYCLOMINE HYDROCHLORIDE
     Indication: Impaired gastric emptying
     Dosage: FREQUENCY : TWICE A DAY;?
     Route: 048
     Dates: start: 20120212, end: 20130215
  3. Pantoprizole [Concomitant]
  4. PROMETHAZINE [Concomitant]
  5. LEVOTHYROXINE [Concomitant]
  6. Vitamin D [Concomitant]
  7. VITAMIN B12 [Concomitant]
     Active Substance: CYANOCOBALAMIN
  8. FOLIC ACID [Concomitant]
     Active Substance: FOLIC ACID

REACTIONS (5)
  - Suicidal ideation [None]
  - Panic disorder [None]
  - Anxiety [None]
  - Negativism [None]
  - Mood swings [None]

NARRATIVE: CASE EVENT DATE: 20150501
